FAERS Safety Report 16090538 (Version 2)
Quarter: 2019Q3

REPORT INFORMATION
  Report Type: Spontaneous
  Country: IT (occurrence: IT)
  Receive Date: 20190319
  Receipt Date: 20190725
  Transmission Date: 20191004
  Serious: Yes (Other)
  Sender: FDA-Public Use
  Company Number: IT-TEVA-2019-IT-1024898

PATIENT
  Age: 52 Year
  Sex: Female

DRUGS (2)
  1. KETOROLAC [Concomitant]
     Active Substance: KETOROLAC TROMETHAMINE
     Indication: PAIN
     Route: 030
  2. LEVOFLOXACIN. [Suspect]
     Active Substance: LEVOFLOXACIN
     Indication: RENAL COLIC
     Dates: start: 20151102, end: 20151102

REACTIONS (5)
  - Urticaria [Recovered/Resolved]
  - Angioedema [Recovered/Resolved]
  - Tachycardia [Recovered/Resolved]
  - Paraesthesia oral [Recovered/Resolved]
  - Asthenia [Recovered/Resolved]

NARRATIVE: CASE EVENT DATE: 20151102
